FAERS Safety Report 6420609-3 (Version None)
Quarter: 2009Q4

REPORT INFORMATION
  Report Type: 
  Country: None (occurrence: None)
  Receive Date: 20091029
  Receipt Date: 20091021
  Transmission Date: 20100525
  Serious: Yes (Other)
  Sender: FDA-Public Use
  Company Number: SG-ABBOTT-09P-141-0604571-00

PATIENT
  Age: 42 Year
  Sex: Male

DRUGS (1)
  1. REDUCTIL [Suspect]
     Indication: WEIGHT CONTROL
     Dates: end: 20091020

REACTIONS (4)
  - ERECTILE DYSFUNCTION [None]
  - FATIGUE [None]
  - INSOMNIA [None]
  - VISION BLURRED [None]
